FAERS Safety Report 13086107 (Version 1)
Quarter: 2017Q1

REPORT INFORMATION
  Report Type: Spontaneous
  Country: US (occurrence: US)
  Receive Date: 20170104
  Receipt Date: 20170104
  Transmission Date: 20170428
  Serious: Yes (Other)
  Sender: FDA-Public Use
  Company Number: US-TEVA-682589USA

PATIENT
  Age: 78 Year
  Sex: Male
  Weight: 70.37 kg

DRUGS (4)
  1. AMOXICILLIN. [Suspect]
     Active Substance: AMOXICILLIN
     Indication: PULMONARY CONGESTION
     Dosage: 750 MILLIGRAM DAILY;
     Route: 065
     Dates: start: 20160318
  2. PENETREX [Concomitant]
     Active Substance: ENOXACIN
     Indication: PAIN
  3. AMOXICILLIN. [Suspect]
     Active Substance: AMOXICILLIN
     Route: 065
  4. MSN [Concomitant]
     Indication: PAIN

REACTIONS (8)
  - Sciatica [Not Recovered/Not Resolved]
  - Nervous system disorder [Not Recovered/Not Resolved]
  - Dyskinesia [Not Recovered/Not Resolved]
  - Joint lock [Not Recovered/Not Resolved]
  - Arthralgia [Not Recovered/Not Resolved]
  - Muscle injury [Not Recovered/Not Resolved]
  - Product use issue [Unknown]
  - Abasia [Unknown]

NARRATIVE: CASE EVENT DATE: 2016
